FAERS Safety Report 10063238 (Version 1)
Quarter: 2014Q2

REPORT INFORMATION
  Report Type: Spontaneous
  Country: US (occurrence: US)
  Receive Date: 20140407
  Receipt Date: 20140407
  Transmission Date: 20141212
  Serious: Yes (Other)
  Sender: FDA-Public Use
  Company Number: US-TEVA-473715USA

PATIENT
  Age: 19 Year
  Sex: Female
  Weight: 81.27 kg

DRUGS (4)
  1. PARAGARD 380A [Suspect]
     Indication: CONTRACEPTION
     Route: 015
     Dates: start: 20140115, end: 20140129
  2. PARAGARD 380A [Suspect]
     Route: 015
     Dates: start: 20140212
  3. ALBUTEROL [Concomitant]
     Indication: ASTHMA
  4. ADVAIR [Concomitant]
     Indication: ASTHMA

REACTIONS (1)
  - Device dislocation [Recovered/Resolved]
